FAERS Safety Report 6453441-5 (Version None)
Quarter: 2009Q4

REPORT INFORMATION
  Report Type: 
  Country: None (occurrence: None)
  Receive Date: 20091124
  Receipt Date: 20091116
  Transmission Date: 20100525
  Serious: Yes (Other)
  Sender: FDA-Public Use
  Company Number: US-ROCHE-669194

PATIENT
  Sex: Female
  Weight: 43.5 kg

DRUGS (2)
  1. CAPECITABINE [Suspect]
     Indication: COLORECTAL CANCER
     Dosage: 1000 MG MORNING AND 500 MG EVENING
     Route: 048
     Dates: start: 20091102
  2. CAPECITABINE [Suspect]
     Dosage: DOSAGE LOWERED
     Route: 048

REACTIONS (2)
  - SKIN LESION [None]
  - TOOTH FRACTURE [None]
